FAERS Safety Report 17925706 (Version 1)
Quarter: 2020Q2

REPORT INFORMATION
  Report Type: Spontaneous
  Country: US (occurrence: US)
  Receive Date: 20200622
  Receipt Date: 20200622
  Transmission Date: 20200714
  Serious: Yes (Other)
  Sender: FDA-Public Use
  Company Number: US-AKORN PHARMACEUTICALS-2020AKN00764

PATIENT
  Age: 75 Year
  Sex: Female
  Weight: 95.28 kg

DRUGS (17)
  1. TERAZOSIN [Concomitant]
     Active Substance: TERAZOSIN HYDROCHLORIDE
     Dosage: 2 MG, 1X/DAY AT BEDTIME
  2. LEVOTHYROXINE. [Concomitant]
     Active Substance: LEVOTHYROXINE
     Dosage: 0.5 MG, 1X/DAY IN THE MORNING
  3. POTASSIUM CHLORIDE ER [Concomitant]
     Active Substance: POTASSIUM CHLORIDE
     Dosage: 200 MEQ, 1X/DAY
     Route: 048
  4. RIFAMPIN. [Suspect]
     Active Substance: RIFAMPIN
     Indication: MYCOBACTERIUM TUBERCULOSIS COMPLEX TEST POSITIVE
     Dosage: 600 MG, 1X/DAY
     Route: 048
     Dates: start: 20200505, end: 20200513
  5. CALCITRIOL. [Concomitant]
     Active Substance: CALCITRIOL
     Dosage: 0.25 ?G, 3X/WEEK IN THE AM
  6. ALLOPURINOL. [Concomitant]
     Active Substance: ALLOPURINOL
     Dosage: 100 MG, 1X/DAY IN THE EVENING
  7. QVAR [Concomitant]
     Active Substance: BECLOMETHASONE DIPROPIONATE
     Dosage: AS NEEDED
  8. FLUTICASONE. [Concomitant]
     Active Substance: FLUTICASONE
  9. LANTUS [Concomitant]
     Active Substance: INSULIN GLARGINE
     Dosage: 16 DOSAGE UNITS, 1X/DAY AT BEDTIME
     Dates: start: 2010
  10. CARVEDILOL. [Concomitant]
     Active Substance: CARVEDILOL
     Dosage: 25 MG, 2X/DAY
  11. CLONIDINE. [Concomitant]
     Active Substance: CLONIDINE
     Dosage: 0.3 MG, 2X/DAY
  12. ROSUVASTATIN. [Concomitant]
     Active Substance: ROSUVASTATIN
     Dosage: 5 MG, 1X/DAY IN THE EVENING
  13. CALCIUM ACETATE. [Concomitant]
     Active Substance: CALCIUM ACETATE
     Dosage: 667 MG, 1X/DAY WITH BIGGEST MEAL, USUALLY THE EVENING MEAL
  14. ASPIRIN. [Concomitant]
     Active Substance: ASPIRIN
     Dosage: 81 MG, 1X/DAY AT BEDTIME
  15. METOLAZONE. [Concomitant]
     Active Substance: METOLAZONE
     Dosage: 2.5 MG, 3X/DAY AS NEEDED
  16. BUMETANIDE. [Concomitant]
     Active Substance: BUMETANIDE
     Dosage: 1 MG, 1X/DAY IN THE EVENING
  17. BUMETANIDE. [Concomitant]
     Active Substance: BUMETANIDE
     Dosage: 2 MG, 1X/DAY IN THE AM

REACTIONS (5)
  - Heart rate increased [Unknown]
  - Pain in extremity [Recovering/Resolving]
  - Peripheral swelling [Recovered/Resolved]
  - Blood pressure increased [Recovered/Resolved]
  - Weight increased [Recovered/Resolved]

NARRATIVE: CASE EVENT DATE: 2020
